FAERS Safety Report 16885346 (Version 1)
Quarter: 2019Q4

REPORT INFORMATION
  Report Type: Spontaneous
  Country: US (occurrence: US)
  Receive Date: 20190809
  Receipt Date: 20190809
  Transmission Date: 20200122
  Serious: Yes (Hospitalization)
  Sender: FDA-Public Use
  Company Number: None

PATIENT
  Age: 42 Year
  Sex: Female

DRUGS (18)
  1. REXULTI [Concomitant]
     Active Substance: BREXPIPRAZOLE
  2. METHYLPREDNISOLONE. [Concomitant]
     Active Substance: METHYLPREDNISOLONE
  3. PREDNISONE. [Concomitant]
     Active Substance: PREDNISONE
  4. PHENTERMINE. [Concomitant]
     Active Substance: PHENTERMINE
  5. GABAPENTIN. [Concomitant]
     Active Substance: GABAPENTIN
  6. CYCLOBENZAPRINE. [Suspect]
     Active Substance: CYCLOBENZAPRINE
  7. FEROSUL [Concomitant]
  8. MONTELUKAST [Concomitant]
     Active Substance: MONTELUKAST SODIUM
  9. MONTELUKAST [Concomitant]
     Active Substance: MONTELUKAST SODIUM
  10. DULOXETINE. [Concomitant]
     Active Substance: DULOXETINE
  11. IPRATROPIUM [Concomitant]
     Active Substance: IPRATROPIUM
  12. CYCLOBENZAPRINE. [Concomitant]
     Active Substance: CYCLOBENZAPRINE
  13. ALBUTEROL. [Concomitant]
     Active Substance: ALBUTEROL
  14. CHANTIX [Concomitant]
     Active Substance: VARENICLINE TARTRATE
  15. FLATICASONE [Concomitant]
  16. CIMZIA [Suspect]
     Active Substance: CERTOLIZUMAB PEGOL
     Dosage: ?          OTHER FREQUENCY:Q28DAYS ;?
     Dates: start: 201902
  17. 1-THYROXINE [Concomitant]
  18. PANTOPRAZOLE [Concomitant]
     Active Substance: PANTOPRAZOLE

REACTIONS (1)
  - Surgery [None]

NARRATIVE: CASE EVENT DATE: 20190801
